FAERS Safety Report 6440898-9 (Version None)
Quarter: 2009Q4

REPORT INFORMATION
  Report Type: 
  Country: None (occurrence: None)
  Receive Date: 20091116
  Receipt Date: 20091102
  Transmission Date: 20100525
  Serious: Yes (Other)
  Sender: FDA-Public Use
  Company Number: PHEH2009US14977

PATIENT
  Sex: Female

DRUGS (4)
  1. EXJADE [Suspect]
     Dosage: 1000 MG, QD
     Route: 048
     Dates: start: 20091019
  2. SANDIMMUNE [Suspect]
  3. METOPROLOL TARTRATE [Suspect]
  4. IMMUNE GLOBULIN (HUMAN) [Suspect]

REACTIONS (4)
  - ARTHRALGIA [None]
  - DRUG TOXICITY [None]
  - GLOSSODYNIA [None]
  - RHEUMATOID ARTHRITIS [None]
